FAERS Safety Report 24536049 (Version 3)
Quarter: 2024Q4

REPORT INFORMATION
  Report Type: Report from Study
  Country: US (occurrence: US)
  Receive Date: 20241022
  Receipt Date: 20241126
  Transmission Date: 20250115
  Serious: Yes (Life-Threatening, Hospitalization)
  Sender: NOVARTIS
  Company Number: US-002147023-NVSC2024US205330

PATIENT
  Age: 51 Year
  Sex: Female
  Weight: 106 kg

DRUGS (44)
  1. PIQRAY [Suspect]
     Active Substance: ALPELISIB
     Indication: Breast cancer
     Dosage: 200 MG
     Route: 048
     Dates: start: 20230731, end: 20230819
  2. PIQRAY [Suspect]
     Active Substance: ALPELISIB
     Dosage: 200 MG
     Route: 048
  3. PIQRAY [Suspect]
     Active Substance: ALPELISIB
     Dosage: 200 MG
     Route: 048
  4. ELACESTRANT [Suspect]
     Active Substance: ELACESTRANT
     Indication: Breast cancer
     Dosage: 258 MG
     Route: 048
     Dates: start: 20230731, end: 20230819
  5. ELACESTRANT [Suspect]
     Active Substance: ELACESTRANT
     Dosage: 258 MG
     Route: 048
  6. ELACESTRANT [Suspect]
     Active Substance: ELACESTRANT
     Dosage: 258 MG
     Route: 048
  7. HYDROCHLOROTHIAZIDE [Concomitant]
     Active Substance: HYDROCHLOROTHIAZIDE
     Indication: Hypertension
     Dosage: UNK
     Route: 065
     Dates: start: 2010
  8. ROSUVASTATIN [Concomitant]
     Active Substance: ROSUVASTATIN
     Indication: Product used for unknown indication
     Dosage: UNK
     Route: 065
     Dates: start: 2010
  9. IRBESARTAN [Concomitant]
     Active Substance: IRBESARTAN
     Indication: Hypercholesterolaemia
     Dosage: 300 MG, QD
     Route: 048
  10. IRON [Concomitant]
     Active Substance: IRON
     Indication: Iron deficiency anaemia
     Dosage: 65 MG, QD
     Route: 048
     Dates: start: 2018
  11. POTASSIUM [Concomitant]
     Active Substance: POTASSIUM
     Indication: Hypokalaemia
     Dosage: 10 MG, QD
     Route: 048
  12. SOTALOL [Concomitant]
     Active Substance: SOTALOL
     Indication: Hypercholesterolaemia
     Dosage: 20 MG, QD
     Route: 048
     Dates: start: 2018
  13. SOTALOL [Concomitant]
     Active Substance: SOTALOL
     Indication: Hypertension
  14. VITAMIN D2 [Concomitant]
     Active Substance: ERGOCALCIFEROL
     Indication: Supplementation therapy
     Dosage: 1.25 MG, QW
     Route: 048
  15. TRULANCE [Concomitant]
     Active Substance: PLECANATIDE
     Indication: Constipation
     Dosage: 3 MG, PRN (AS NEEDED)
     Route: 048
     Dates: start: 202307
  16. LEUPROLIDE ACETATE [Concomitant]
     Active Substance: LEUPROLIDE ACETATE
     Indication: Menopause
     Dosage: 3.75 MG, QMO (INJECTION)
     Route: 058
     Dates: start: 20230706
  17. XGEVA [Concomitant]
     Active Substance: DENOSUMAB
     Indication: Product used for unknown indication
     Dosage: 120 MG, QMO
     Route: 058
     Dates: start: 20230707
  18. DIPHENHYDRAMINE HYDROCHLORIDE\LIDOCAINE HYDROCHLORIDE\NYSTATIN [Concomitant]
     Active Substance: DIPHENHYDRAMINE HYDROCHLORIDE\LIDOCAINE HYDROCHLORIDE\NYSTATIN
     Indication: Stomatitis
     Dosage: UNK (SWISH AND SPIT)
     Route: 048
     Dates: start: 20230814
  19. METFORMIN [Concomitant]
     Active Substance: METFORMIN HYDROCHLORIDE
     Indication: Product used for unknown indication
     Dosage: 500 MG, QD
     Route: 048
     Dates: start: 20230818
  20. ACETAMINOPHEN\HYDROCODONE [Concomitant]
     Active Substance: ACETAMINOPHEN\HYDROCODONE
     Indication: Product used for unknown indication
     Dosage: UNK (5/325 MG)
     Route: 048
     Dates: start: 202307
  21. ACETAMINOPHEN\HYDROCODONE [Concomitant]
     Active Substance: ACETAMINOPHEN\HYDROCODONE
     Dosage: UNK (10/325 MG)
     Route: 048
     Dates: start: 20230822
  22. ACETAMINOPHEN [Concomitant]
     Active Substance: ACETAMINOPHEN
     Indication: Product used for unknown indication
     Dosage: 650 MG
     Route: 048
     Dates: start: 20230828
  23. CALTRATE WITH VITAMIN D [Concomitant]
     Active Substance: CALCIUM CARBONATE\CHOLECALCIFEROL
     Indication: Supplementation therapy
     Dosage: 600 MG, QD
     Route: 048
  24. ROCEPHIN [Concomitant]
     Active Substance: CEFTRIAXONE SODIUM
     Indication: Product used for unknown indication
     Dosage: 1000 MG (ONCE)
     Route: 042
     Dates: start: 20230831
  25. VANCOMYCIN [Concomitant]
     Active Substance: VANCOMYCIN
     Indication: Product used for unknown indication
     Dosage: 1000 MG
     Route: 042
     Dates: start: 20240831
  26. MAXIPIME [Concomitant]
     Active Substance: CEFEPIME HYDROCHLORIDE
     Indication: Product used for unknown indication
     Dosage: 2000 MG
     Route: 042
     Dates: start: 20230901
  27. HEPARIN [Concomitant]
     Active Substance: HEPARIN SODIUM
     Indication: Product used for unknown indication
     Dosage: 5000 DOSAGE FORM (RIGHT LOWER ABDOMINAL QUADRANT)
     Route: 042
     Dates: start: 20230901
  28. CEFEPIME [Concomitant]
     Active Substance: CEFEPIME HYDROCHLORIDE
     Indication: Product used for unknown indication
     Dosage: 2000 MG
     Route: 042
     Dates: start: 20230901, end: 20230906
  29. DOCUSATE [Concomitant]
     Active Substance: DOCUSATE
     Indication: Product used for unknown indication
     Dosage: 100 MG, BID
     Route: 048
     Dates: start: 20230902, end: 20230906
  30. LOVENOX [Concomitant]
     Active Substance: ENOXAPARIN SODIUM
     Indication: Product used for unknown indication
     Dosage: 40 MG, QD (LD ABDOMINAL QUADRANT)
     Route: 065
     Dates: start: 20230902, end: 20240905
  31. MIRALAX [Concomitant]
     Active Substance: POLYETHYLENE GLYCOL 3350
     Indication: Product used for unknown indication
     Dosage: 17 G, QD
     Route: 048
     Dates: start: 20230902, end: 20230906
  32. SODIUM CHLORIDE [Concomitant]
     Active Substance: SODIUM CHLORIDE
     Indication: Product used for unknown indication
     Dosage: 2000 ML
     Route: 042
     Dates: start: 20230831
  33. NOREPINEPHRINE [Concomitant]
     Active Substance: NOREPINEPHRINE\NOREPINEPHRINE BITARTRATE
     Indication: Product used for unknown indication
     Dosage: 250 ML ( 16 MG + DEXTROSE 5%)
     Route: 042
     Dates: start: 20230831
  34. NOREPINEPHRINE [Concomitant]
     Active Substance: NOREPINEPHRINE\NOREPINEPHRINE BITARTRATE
     Dosage: 250 ML (8 MG + DEXTROSE 5% IN WATER 250 ML)
     Route: 042
     Dates: start: 20230901
  35. SODIUM CHLORIDE [Concomitant]
     Active Substance: SODIUM CHLORIDE
     Indication: Product used for unknown indication
     Dosage: 1000 ML
     Route: 042
     Dates: start: 20230831
  36. MORPHINE [Concomitant]
     Active Substance: MORPHINE
     Indication: Product used for unknown indication
     Dosage: 2 MG
     Route: 042
     Dates: start: 20230901, end: 20230903
  37. IBUPROFEN [Concomitant]
     Active Substance: IBUPROFEN
     Indication: Product used for unknown indication
     Dosage: 200 MG
     Route: 048
     Dates: end: 20230903
  38. SODIUM CHLORIDE [Concomitant]
     Active Substance: SODIUM CHLORIDE
     Indication: Product used for unknown indication
     Dosage: 1000 ML
     Route: 042
     Dates: start: 20230901, end: 20230905
  39. ATORVASTATIN [Concomitant]
     Active Substance: ATORVASTATIN
     Indication: Hypercholesterolaemia
     Dosage: 20 MG, QD
     Route: 048
     Dates: start: 20230901, end: 20230906
  40. LINACLOTIDE [Concomitant]
     Active Substance: LINACLOTIDE
     Indication: Product used for unknown indication
     Dosage: UNK
     Route: 065
  41. LINZESS [Concomitant]
     Active Substance: LINACLOTIDE
     Indication: Constipation
     Dosage: 145 UG (EVERY 2 DAYS)
     Route: 048
     Dates: start: 20230903
  42. POTASSIUM CHLORIDE [Concomitant]
     Active Substance: POTASSIUM CHLORIDE
     Indication: Hypokalaemia
     Dosage: 40 UNK
     Route: 048
     Dates: start: 20230903
  43. BYSTOLIC [Concomitant]
     Active Substance: NEBIVOLOL HYDROCHLORIDE
     Indication: Hypertension
     Dosage: 10 MG
     Route: 048
     Dates: start: 20230906
  44. LUPRON [Concomitant]
     Active Substance: LEUPROLIDE ACETATE
     Indication: Product used for unknown indication
     Dosage: UNK
     Route: 065
     Dates: start: 20230706

REACTIONS (20)
  - Pancreatitis [Recovered/Resolved]
  - Nausea [Unknown]
  - Abdominal pain upper [Unknown]
  - Decreased appetite [Unknown]
  - Weight decreased [Unknown]
  - Stomatitis [Unknown]
  - Vision blurred [Unknown]
  - Hyperglycaemia [Unknown]
  - Fatigue [Unknown]
  - Pain [Unknown]
  - Pollakiuria [Unknown]
  - Dizziness [Unknown]
  - Abdominal pain [Unknown]
  - Dysgeusia [Unknown]
  - Tachycardia [Unknown]
  - Hypercalcaemia [Unknown]
  - Aspartate aminotransferase increased [Unknown]
  - Alanine aminotransferase increased [Unknown]
  - Lipase increased [Unknown]
  - Confusional state [Unknown]

NARRATIVE: CASE EVENT DATE: 20230731
